FAERS Safety Report 24139656 (Version 1)
Quarter: 2024Q3

REPORT INFORMATION
  Report Type: Report from Study
  Country: BR (occurrence: BR)
  Receive Date: 20240726
  Receipt Date: 20240726
  Transmission Date: 20241017
  Serious: Yes (Hospitalization)
  Sender: ROCHE
  Company Number: BR-ROCHE-10000031522

PATIENT
  Age: 61 Year
  Sex: Male
  Weight: 80.85 kg

DRUGS (11)
  1. TECENTRIQ [Suspect]
     Active Substance: ATEZOLIZUMAB
     Indication: Malignant melanoma
     Route: 042
     Dates: start: 20240425
  2. COBIMETINIB [Suspect]
     Active Substance: COBIMETINIB
     Indication: Malignant melanoma
     Dosage: 60 MG PER DAY BEING 3 TABLETS OF 20 MG ONCE A DAY IN THE MORNING TOGETHER THE MORNING DOSE OF VEMURA
     Route: 048
     Dates: start: 20240425
  3. VEMURAFENIB [Suspect]
     Active Substance: VEMURAFENIB
     Indication: Malignant melanoma
     Dosage: 720 MG (3 TABLETS) TWICE A DAY IN THE MORNING AND AT NIGHT FROM DAY 1 TO 28 OF EACH CYCLE OF 28 DAYS
     Route: 048
     Dates: start: 20240425
  4. ONDANSETRON [Concomitant]
     Active Substance: ONDANSETRON
     Indication: Nausea
     Dosage: 2 MG/ML (4 ML - 8 MG)
     Route: 042
     Dates: start: 20240715
  5. METOCLOPRAMIDE [Concomitant]
     Active Substance: METOCLOPRAMIDE
     Indication: Nausea
     Dosage: 5 MG/ML (VIAL 2 ML - 10 MG)
     Route: 042
     Dates: start: 20240717
  6. OMEPRAZOLE [Concomitant]
     Active Substance: OMEPRAZOLE
     Route: 042
     Dates: start: 20240715
  7. CLONAZEPAM [Concomitant]
     Active Substance: CLONAZEPAM
     Indication: Depression
     Dosage: (2 MG, 0.5 CP (NOT SPECIFIED IF TABLET OR CAPSULE))
     Route: 048
     Dates: start: 20210112
  8. CLONAZEPAM [Concomitant]
     Active Substance: CLONAZEPAM
     Indication: Anxiety
  9. SERTRALINE [Concomitant]
     Active Substance: SERTRALINE HYDROCHLORIDE
     Indication: Depression
     Dosage: CP (NOT SPECIFIED IF TABLET OR CAPSULE)
     Route: 048
     Dates: start: 20210508
  10. SERTRALINE [Concomitant]
     Active Substance: SERTRALINE HYDROCHLORIDE
     Indication: Anxiety
  11. GLUCOSE SERUM [Concomitant]

REACTIONS (1)
  - Intestinal obstruction [Recovered/Resolved]

NARRATIVE: CASE EVENT DATE: 20240715
